FAERS Safety Report 20097072 (Version 3)
Quarter: 2022Q1

REPORT INFORMATION
  Report Type: Spontaneous
  Country: JP (occurrence: JP)
  Receive Date: 20211122
  Receipt Date: 20220126
  Transmission Date: 20220423
  Serious: Yes (Other)
  Sender: FDA-Public Use
  Company Number: JP-BRISTOL-MYERS SQUIBB COMPANY-BMS-2021-123221

PATIENT
  Age: 67 Year
  Sex: Male

DRUGS (7)
  1. YERVOY [Suspect]
     Active Substance: IPILIMUMAB
     Indication: Non-small cell lung cancer
     Dosage: 50 MILLIGRAM, ONE TIME DOSE
     Route: 041
     Dates: start: 20211018
  2. OPDIVO [Suspect]
     Active Substance: NIVOLUMAB
     Indication: Non-small cell lung cancer
     Dosage: 360 MILLIGRAM, ONE TIME DOSE
     Route: 041
     Dates: start: 20211018, end: 20211018
  3. OPDIVO [Suspect]
     Active Substance: NIVOLUMAB
     Dosage: 360 MILLIGRAM, ONE TIME DOSE
     Route: 041
     Dates: start: 20211108, end: 20211108
  4. CARBOPLATIN [Suspect]
     Active Substance: CARBOPLATIN
     Indication: Non-small cell lung cancer
     Dosage: 440 MILLIGRAM, ONE TIME DOSE
     Route: 041
     Dates: start: 20211018, end: 20211018
  5. CARBOPLATIN [Suspect]
     Active Substance: CARBOPLATIN
     Dosage: 440 MILLIGRAM, ONE TIME DOSE
     Route: 041
     Dates: start: 20211108, end: 20211108
  6. ALIMTA [Suspect]
     Active Substance: PEMETREXED DISODIUM
     Indication: Non-small cell lung cancer
     Dosage: 760 MILLIGRAM, ONE TIME DOSE
     Route: 065
     Dates: start: 20211018, end: 20211018
  7. ALIMTA [Suspect]
     Active Substance: PEMETREXED DISODIUM
     Dosage: 760 MILLIGRAM, ONE TIME DOSE
     Route: 065
     Dates: start: 20211108, end: 20211108

REACTIONS (1)
  - Neutrophil count decreased [Recovered/Resolved]

NARRATIVE: CASE EVENT DATE: 20211025
